FAERS Safety Report 17765728 (Version 3)
Quarter: 2020Q2

REPORT INFORMATION
  Report Type: Spontaneous
  Country: US (occurrence: US)
  Receive Date: 20200511
  Receipt Date: 20200617
  Transmission Date: 20200714
  Serious: No
  Sender: FDA-Public Use
  Company Number: US-SHIRE-US202015822

PATIENT
  Sex: Female

DRUGS (2)
  1. GATTEX [Suspect]
     Active Substance: TEDUGLUTIDE\WATER
     Dosage: 0.3640 UNIT UNKNOWN, 1X/DAY:QD
     Route: 058
     Dates: start: 20200324
  2. GATTEX [Suspect]
     Active Substance: TEDUGLUTIDE\WATER
     Indication: SHORT-BOWEL SYNDROME
     Dosage: 3.61 MILLIGRAM, 1X/DAY:QD
     Route: 058
     Dates: start: 201911, end: 202004

REACTIONS (7)
  - Vomiting [Recovering/Resolving]
  - Abdominal pain [Recovering/Resolving]
  - Cough [Unknown]
  - Furuncle [Recovering/Resolving]
  - Pyrexia [Recovered/Resolved]
  - Inappropriate schedule of product administration [Not Recovered/Not Resolved]
  - Gastrointestinal pain [Unknown]
